FAERS Safety Report 15338877 (Version 2)
Quarter: 2018Q3

REPORT INFORMATION
  Report Type: Spontaneous
  Country: US (occurrence: US)
  Receive Date: 20180831
  Receipt Date: 20180915
  Transmission Date: 20181010
  Serious: Yes (Other)
  Sender: FDA-Public Use
  Company Number: US-AMGEN-USASP2018117853

PATIENT
  Age: 64 Year
  Sex: Female

DRUGS (1)
  1. PROLIA [Suspect]
     Active Substance: DENOSUMAB
     Indication: OSTEOPOROSIS
     Dosage: UNK UNK, Q6MO
     Route: 065

REACTIONS (23)
  - Stress [Unknown]
  - Asthenia [Unknown]
  - Arthralgia [Unknown]
  - Foot fracture [Unknown]
  - Knee arthroplasty [Unknown]
  - Chest pain [Unknown]
  - Swollen tongue [Unknown]
  - Tongue biting [Not Recovered/Not Resolved]
  - Vomiting [Not Recovered/Not Resolved]
  - Precancerous cells present [Unknown]
  - Tongue disorder [Unknown]
  - Swelling face [Not Recovered/Not Resolved]
  - Pharyngeal oedema [Unknown]
  - Pain in jaw [Unknown]
  - Feeling abnormal [Unknown]
  - Urticaria [Not Recovered/Not Resolved]
  - Immune system disorder [Unknown]
  - Choking [Recovering/Resolving]
  - Heart rate irregular [Unknown]
  - Dyspnoea [Recovering/Resolving]
  - Throat tightness [Unknown]
  - Fatigue [Unknown]
  - Myocardial bridging [Unknown]

NARRATIVE: CASE EVENT DATE: 201806
